FAERS Safety Report 12926993 (Version 1)
Quarter: 2016Q4

REPORT INFORMATION
  Report Type: Spontaneous
  Country: US (occurrence: US)
  Receive Date: 20161109
  Receipt Date: 20161109
  Transmission Date: 20170207
  Serious: Yes (Other)
  Sender: FDA-Public Use
  Company Number: US-CELGENEUS-USA-2016110260

PATIENT
  Sex: Male

DRUGS (2)
  1. REVLIMID [Suspect]
     Active Substance: LENALIDOMIDE
     Indication: CHEMOTHERAPY
     Route: 048
     Dates: start: 20150710
  2. REVLIMID [Suspect]
     Active Substance: LENALIDOMIDE
     Route: 048
     Dates: start: 201611

REACTIONS (5)
  - Thrombosis [Unknown]
  - Mouth ulceration [Unknown]
  - Staphylococcal infection [Unknown]
  - Diarrhoea [Unknown]
  - Fatigue [Unknown]
